FAERS Safety Report 17979664 (Version 1)
Quarter: 2020Q3

REPORT INFORMATION
  Report Type: Report from Study
  Country: CN (occurrence: CN)
  Receive Date: 20200703
  Receipt Date: 20200703
  Transmission Date: 20201103
  Serious: Yes (Other)
  Sender: FDA-Public Use
  Company Number: CN-JNJFOC-20200636162

PATIENT

DRUGS (2)
  1. AZATHIOPRINE. [Concomitant]
     Active Substance: AZATHIOPRINE
     Indication: CROHN^S DISEASE
  2. REMICADE [Suspect]
     Active Substance: INFLIXIMAB
     Indication: CROHN^S DISEASE
     Dosage: 5 MG/KG AT WEEKS 0, 2, AND 6, FOLLOWED 5 MG/KG EVERY 8 WEEKS
     Route: 042

REACTIONS (10)
  - Pneumonia [Unknown]
  - Drug specific antibody [Unknown]
  - Leukopenia [Unknown]
  - Therapeutic response decreased [Unknown]
  - Chest discomfort [Unknown]
  - Therapeutic product effect incomplete [Unknown]
  - Drug level decreased [Unknown]
  - Lupus-like syndrome [Unknown]
  - Hypersensitivity [Unknown]
  - Heart rate abnormal [Unknown]
